FAERS Safety Report 9969281 (Version 1)
Quarter: 2014Q1

REPORT INFORMATION
  Report Type: Spontaneous
  Country: US (occurrence: US)
  Receive Date: 20140306
  Receipt Date: 20140306
  Transmission Date: 20141002
  Serious: No
  Sender: FDA-Public Use
  Company Number: US-BIOGENIDEC-2014BI018285

PATIENT
  Age: 63 Year
  Sex: Male

DRUGS (12)
  1. TECFIDERA [Suspect]
     Indication: MULTIPLE SCLEROSIS
     Route: 048
     Dates: start: 20130522
  2. AMPYRA [Concomitant]
  3. ASPIRIN ADULT LOW STRENGTH [Concomitant]
  4. FISH OIL [Concomitant]
  5. MIRALAX [Concomitant]
  6. MOBIC [Concomitant]
  7. PEPTO-BIISMOL [Concomitant]
  8. POLYETHYLENE GLYCOL [Concomitant]
  9. PREDNISONE [Concomitant]
  10. VILAMIN B COMPLEX [Concomitant]
  11. VITAMIN D [Concomitant]
  12. ZANTAC [Concomitant]

REACTIONS (4)
  - Vitreous floaters [Unknown]
  - Vision blurred [Unknown]
  - Arthralgia [Unknown]
  - Back pain [Unknown]
